FAERS Safety Report 7396516-9 (Version None)
Quarter: 2011Q2

REPORT INFORMATION
  Report Type: 
  Country: None (occurrence: None)
  Receive Date: 20110406
  Receipt Date: 20110328
  Transmission Date: 20111010
  Serious: Yes (Hospitalization, Other)
  Sender: FDA-Public Use
  Company Number: US-SANOFI-AVENTIS-2011SA007672

PATIENT
  Age: 45 Year
  Sex: Male
  Weight: 136 kg

DRUGS (5)
  1. MULTAQ [Suspect]
     Route: 048
     Dates: start: 20101230, end: 20110126
  2. DABIGATRAN [Concomitant]
  3. METOPROLOL [Concomitant]
  4. LEVOXYL [Concomitant]
  5. ASPIRIN [Concomitant]

REACTIONS (4)
  - VENTRICULAR TACHYCARDIA [None]
  - PALPITATIONS [None]
  - SYNCOPE [None]
  - SINUS BRADYCARDIA [None]
